FAERS Safety Report 10264907 (Version 1)
Quarter: 2014Q2

REPORT INFORMATION
  Report Type: Spontaneous
  Country: IT (occurrence: IT)
  Receive Date: 20140627
  Receipt Date: 20140627
  Transmission Date: 20141212
  Serious: Yes (Hospitalization)
  Sender: FDA-Public Use
  Company Number: IT-BAYER-2014-092947

PATIENT
  Age: 67 Year
  Sex: Female

DRUGS (7)
  1. CARDIOASPIRIN [Suspect]
     Dosage: 100 MG, QD
     Route: 048
     Dates: start: 20140428, end: 20140510
  2. PLAVIX [Suspect]
     Dosage: 75 MG, QD
     Route: 048
     Dates: start: 20140428, end: 20140504
  3. RANEXA [Suspect]
     Dosage: 375 MG, QD
     Route: 048
     Dates: start: 20140505
  4. SEQUACOR [Concomitant]
  5. MICARDIS PLUS [Concomitant]
     Dosage: 1 DF, QD
  6. LANSOPRAZOLE [Concomitant]
     Dosage: DAILY DOSE 15 MG
  7. TORVAST [Concomitant]
     Dosage: DAILY DOSE 20 MG

REACTIONS (5)
  - Cerebral haemorrhage [Unknown]
  - Headache [Unknown]
  - Visual impairment [Unknown]
  - Confusional state [Unknown]
  - Nausea [Unknown]
